FAERS Safety Report 11486471 (Version 1)
Quarter: 2015Q3

REPORT INFORMATION
  Report Type: Report from Study
  Country: US (occurrence: US)
  Receive Date: 20150910
  Receipt Date: 20150910
  Transmission Date: 20151125
  Serious: No
  Sender: FDA-Public Use
  Company Number: US-AMGEN-USASL2015091185

PATIENT
  Age: 44 Year
  Sex: Male

DRUGS (1)
  1. ENBREL [Suspect]
     Active Substance: ETANERCEPT
     Indication: PSORIATIC ARTHROPATHY
     Dosage: 50 MG, QWK
     Route: 065
     Dates: start: 2014, end: 2015

REACTIONS (7)
  - Abdominal discomfort [Unknown]
  - Injection site mass [Unknown]
  - Injection site reaction [Unknown]
  - Injection site pain [Unknown]
  - Dysgeusia [Unknown]
  - Injection site warmth [Unknown]
  - Injection site bruising [Unknown]
